FAERS Safety Report 9442617 (Version 1)
Quarter: 2013Q3

REPORT INFORMATION
  Report Type: Spontaneous
  Country: FR (occurrence: FR)
  Receive Date: 20130806
  Receipt Date: 20130806
  Transmission Date: 20140515
  Serious: Yes (Hospitalization, Disabling, Other)
  Sender: FDA-Public Use
  Company Number: FR-PFIZER INC-2013223738

PATIENT
  Age: 87 Year
  Sex: Female

DRUGS (4)
  1. METHOTREXATE [Suspect]
     Indication: CHRONIC LYMPHOCYTIC LEUKAEMIA
     Dosage: 15 MG DAILY
     Route: 037
     Dates: start: 20120813, end: 20121003
  2. DEPO-MEDROL [Suspect]
     Indication: CHRONIC LYMPHOCYTIC LEUKAEMIA
     Dosage: 40MG DAILY
     Route: 037
     Dates: start: 20120813, end: 20121003
  3. ARACYTINE [Suspect]
     Indication: CHRONIC LYMPHOCYTIC LEUKAEMIA
     Dosage: 40MG DAILY
     Route: 037
     Dates: start: 20120831, end: 20121003
  4. DEPOCYT [Suspect]
     Indication: CHRONIC LYMPHOCYTIC LEUKAEMIA
     Dosage: 40MG DAILY
     Route: 037
     Dates: start: 20120813, end: 20120813

REACTIONS (5)
  - Off label use [Unknown]
  - Spinal cord compression [Not Recovered/Not Resolved]
  - Paraparesis [Not Recovered/Not Resolved]
  - Hypoaesthesia [Not Recovered/Not Resolved]
  - Pulmonary embolism [Unknown]
